FAERS Safety Report 13296102 (Version 1)
Quarter: 2017Q1

REPORT INFORMATION
  Report Type: Spontaneous
  Country: IT (occurrence: IT)
  Receive Date: 20170304
  Receipt Date: 20170304
  Transmission Date: 20170428
  Serious: Yes (Hospitalization)
  Sender: FDA-Public Use
  Company Number: IT-SUN PHARMACEUTICAL INDUSTRIES LTD-2017RR-134682

PATIENT
  Age: 52 Year
  Sex: Male

DRUGS (3)
  1. VECTIBIX [Concomitant]
     Active Substance: PANITUMUMAB
     Indication: RECTAL CANCER
     Dosage: 373 MG
     Route: 042
     Dates: start: 20160712, end: 20160712
  2. OXALIPLATINO SUN 5 MG/ML, CONCENTRATO PER SOLUZIONE PER INFUSIONE [Suspect]
     Active Substance: OXALIPLATIN
     Indication: RECTAL CANCER
     Dosage: 117 MG TOTAL
     Route: 042
     Dates: start: 20160712, end: 20160712
  3. FLUOROURACILE TEVA 5 G/100 ML [Concomitant]
     Active Substance: FLUOROURACIL
     Indication: RECTAL CANCER
     Dosage: 3873 MG
     Route: 042
     Dates: start: 20160712, end: 20160712

REACTIONS (3)
  - Acute respiratory failure [Recovering/Resolving]
  - Bronchospasm [Recovering/Resolving]
  - Hypersensitivity [Recovering/Resolving]

NARRATIVE: CASE EVENT DATE: 20160712
